FAERS Safety Report 6710285-4 (Version None)
Quarter: 2010Q2

REPORT INFORMATION
  Report Type: 
  Country: None (occurrence: None)
  Receive Date: 20100430
  Receipt Date: 20100417
  Transmission Date: 20101027
  Serious: Yes (Hospitalization)
  Sender: FDA-Public Use
  Company Number: 2010AP000793

PATIENT
  Age: 82 Year
  Sex: Male

DRUGS (7)
  1. GEMFIBROZIL [Suspect]
     Dosage: 600 MG; BID
  2. SIMVASTATIN [Suspect]
     Dosage: 80 MG; QD
  3. LISINOPRIL [Concomitant]
  4. METOPROLOL [Concomitant]
  5. HYDROCODONE BITARTRATE [Concomitant]
  6. PARACETAMOL [Concomitant]
  7. CYCLOBENZAPRINE [Concomitant]

REACTIONS (11)
  - ALANINE AMINOTRANSFERASE INCREASED [None]
  - ASPARTATE AMINOTRANSFERASE INCREASED [None]
  - BLOOD ALBUMIN DECREASED [None]
  - BLOOD CALCIUM DECREASED [None]
  - BLOOD SODIUM DECREASED [None]
  - DRUG INTERACTION [None]
  - HAEMODIALYSIS [None]
  - HEPATIC FUNCTION ABNORMAL [None]
  - PLASMAPHERESIS [None]
  - RENAL FAILURE ACUTE [None]
  - RHABDOMYOLYSIS [None]
